FAERS Safety Report 8100843-7 (Version None)
Quarter: 2012Q1

REPORT INFORMATION
  Report Type: 
  Country: None (occurrence: None)
  Receive Date: 20120129
  Receipt Date: 20111014
  Transmission Date: 20120608
  Serious: No
  Sender: FDA-Public Use
  Company Number: US-ABBOTT-11P-163-0864831-00

PATIENT
  Age: 30 Year
  Sex: Female

DRUGS (8)
  1. ENTOCORT EC [Concomitant]
     Dosage: TAPERING DOSE FOR 6 WEEKS
  2. HUMIRA [Suspect]
     Indication: CROHN'S DISEASE
     Dosage: DAY 1
     Dates: start: 20111014
  3. SERTRALINE HYDROCHLORIDE [Concomitant]
     Indication: DEPRESSION
  4. PENTASA [Concomitant]
     Indication: CROHN'S DISEASE
  5. ENTOCORT EC [Concomitant]
     Indication: CROHN'S DISEASE
     Dosage: FOR 6 WEEKS
  6. OXYDOXEPIN [Concomitant]
     Indication: PRODUCT USED FOR UNKNOWN INDICATION
     Dosage: AT BEDTIME
  7. ENTOCORT EC [Concomitant]
     Dosage: TAPERING DOSE FOR 6 WEEKS
  8. XANAX [Concomitant]
     Indication: PRODUCT USED FOR UNKNOWN INDICATION
     Dosage: 4-6 DOSAGE FORMS

REACTIONS (7)
  - FEELING HOT [None]
  - FEELING COLD [None]
  - INJECTION SITE PAIN [None]
  - FATIGUE [None]
  - DEVICE MALFUNCTION [None]
  - INCORRECT DOSE ADMINISTERED [None]
  - ABDOMINAL PAIN UPPER [None]
